FAERS Safety Report 23808866 (Version 1)
Quarter: 2024Q2

REPORT INFORMATION
  Report Type: Spontaneous
  Country: ES (occurrence: ES)
  Receive Date: 20240502
  Receipt Date: 20240502
  Transmission Date: 20240716
  Serious: Yes (Hospitalization)
  Sender: FDA-Public Use
  Company Number: None

PATIENT
  Age: 60 Year
  Sex: Female

DRUGS (10)
  1. LEVOFLOXACIN [Suspect]
     Active Substance: LEVOFLOXACIN
     Indication: Pneumonia
     Dosage: 500 MILLIGRAM, QD, 500.0 MG EVERY/24 HOURS
     Route: 048
     Dates: start: 20230302, end: 20230303
  2. BISOPROLOL [Concomitant]
     Active Substance: BISOPROLOL\BISOPROLOL FUMARATE
     Indication: Myocardial ischaemia
     Dosage: 7.5 MILLIGRAM, QD, 7.5 MG DINNER
     Route: 048
     Dates: start: 20141219
  3. ACUOLENS [Concomitant]
     Indication: Sjogren^s syndrome
     Dosage: 1.0 DROPS EVERY/8 HOURS, Q8H
     Route: 047
     Dates: start: 20200708
  4. CITICOLINE [Concomitant]
     Active Substance: CITICOLINE
     Indication: Myocardial ischaemia
     Dosage: 1000 MILLIGRAM, QD, 1000.0 MG BEFORE DINNER
     Route: 048
     Dates: start: 20201106
  5. CAPTOR [Concomitant]
     Indication: Product used for unknown indication
     Dosage: 1 DOSAGE FORM, BID, 1.0 TABLET EVERY/12 HOURS
     Route: 048
     Dates: start: 20220406
  6. ASPIRIN [Concomitant]
     Active Substance: ASPIRIN
     Indication: Product used for unknown indication
     Dosage: 100 MILLIGRAM, QD, 100.0 MG BREAKFAST
     Route: 048
     Dates: start: 20170623
  7. BLISSEL [Concomitant]
     Indication: Dyspareunia
     Dosage: 1.0 APLICATION EVERY/72 HOURS, Q3D
     Route: 067
     Dates: start: 20210422
  8. OTILONIUM BROMIDE [Concomitant]
     Active Substance: OTILONIUM BROMIDE
     Indication: Renal colic
     Dosage: 40 MILLIGRAM, BID, 40.0 MG BEFORE BREAKFAST AND DINNER
     Route: 048
     Dates: start: 20220916
  9. EFFERALGAN [Concomitant]
     Active Substance: ACETAMINOPHEN
     Indication: Abdominal pain
     Dosage: 1 GRAM, TID, 1.0 G BREAKFAST, LUNCH AND DINNER
     Route: 048
     Dates: start: 20210209
  10. CALCIUM\CHOLECALCIFEROL [Concomitant]
     Active Substance: CALCIUM\CHOLECALCIFEROL
     Indication: Cholelithiasis
     Dosage: 25 MILLIGRAM, BID, 25.0 MG BREAKFAST AND LUNCH
     Route: 048
     Dates: start: 20220421

REACTIONS (3)
  - Hypersensitivity [Recovered/Resolved]
  - Intercepted product prescribing error [Recovered/Resolved]
  - Medication error [Recovered/Resolved]

NARRATIVE: CASE EVENT DATE: 20230303
